FAERS Safety Report 14282977 (Version 1)
Quarter: 2017Q4

REPORT INFORMATION
  Report Type: Spontaneous
  Country: RU (occurrence: RU)
  Receive Date: 20171213
  Receipt Date: 20171213
  Transmission Date: 20180321
  Serious: Yes (Other)
  Sender: FDA-Public Use
  Company Number: RU-TEVA-2017-RU-831678

PATIENT
  Age: 80 Year
  Sex: Female

DRUGS (2)
  1. CARBOPLATIN-TEVA [Suspect]
     Active Substance: CARBOPLATIN
     Indication: OVARIAN CANCER
     Route: 042
     Dates: start: 20171116, end: 20171116
  2. AVASTIN [Concomitant]
     Active Substance: BEVACIZUMAB
     Indication: OVARIAN CANCER
     Dates: start: 20171116, end: 20171116

REACTIONS (4)
  - Anaphylactic shock [Recovered/Resolved]
  - Product quality issue [Unknown]
  - Asphyxia [Recovered/Resolved]
  - Oedema [Recovered/Resolved]

NARRATIVE: CASE EVENT DATE: 20171116
